FAERS Safety Report 5200547-4 (Version None)
Quarter: 2006Q4

REPORT INFORMATION
  Report Type: 
  Country: None (occurrence: None)
  Receive Date: 20061016
  Receipt Date: 20051108
  Transmission Date: 20070319
  Serious: Yes (Other)
  Sender: FDA-Public Use
  Company Number: 2005154052

PATIENT
  Age: 32 Year
  Sex: Male

DRUGS (6)
  1. NEURONTIN [Suspect]
     Indication: ARTHRALGIA
  2. TRILEPTAL [Concomitant]
  3. CLONAZEPAM [Concomitant]
  4. LEXAPRO [Concomitant]
  5. VALIUM [Concomitant]
  6. ALL OTHER THERAPEUTIC PRODUCTS (ALL OTHER THERAPEUTIC PRODUCTS) [Concomitant]

REACTIONS (2)
  - AMNESIA [None]
  - SUICIDE ATTEMPT [None]
